FAERS Safety Report 7589609-4 (Version None)
Quarter: 2011Q3

REPORT INFORMATION
  Report Type: 
  Country: None (occurrence: None)
  Receive Date: 20110705
  Receipt Date: 20110629
  Transmission Date: 20111222
  Serious: Yes (Other)
  Sender: FDA-Public Use
  Company Number: US-B.I. PHARMACEUTICALS,INC./RIDGEFIELD-2011-BP-14516BP

PATIENT
  Age: 52 Year
  Sex: Male
  Weight: 87.08 kg

DRUGS (8)
  1. SPIRIVA [Suspect]
     Indication: CHRONIC OBSTRUCTIVE PULMONARY DISEASE
  2. ADVAIR DISKUS 100/50 [Concomitant]
     Indication: RESTRICTIVE PULMONARY DISEASE
  3. PROVENTIL [Concomitant]
  4. ADVAIR DISKUS 100/50 [Concomitant]
     Indication: ASTHMA
     Route: 055
  5. BENICAR [Concomitant]
     Dosage: 20 MG
  6. SPIRIVA [Suspect]
     Indication: RESTRICTIVE PULMONARY DISEASE
     Dosage: 18 MCG
     Route: 055
     Dates: start: 20110601, end: 20110603
  7. TRILIPIX DR [Concomitant]
     Dosage: 135 MG
  8. CRESTOR [Concomitant]
     Dosage: 10 MG

REACTIONS (4)
  - FATIGUE [None]
  - PRODUCTIVE COUGH [None]
  - CHEST PAIN [None]
  - CHEST DISCOMFORT [None]
